FAERS Safety Report 11143932 (Version 2)
Quarter: 2015Q2

REPORT INFORMATION
  Report Type: Report from Study
  Country: US (occurrence: US)
  Receive Date: 20150526
  Receipt Date: 20150626
  Transmission Date: 20150821
  Serious: Yes (Hospitalization, Other)
  Sender: FDA-Public Use
  Company Number: US-ABBVIE-15K-163-1392969-00

PATIENT
  Age: 77 Year
  Sex: Female
  Weight: 77.36 kg

DRUGS (16)
  1. FOLIC ACID. [Concomitant]
     Active Substance: FOLIC ACID
     Indication: PRODUCT USED FOR UNKNOWN INDICATION
     Route: 048
     Dates: start: 20141017
  2. HUMIRA [Suspect]
     Active Substance: ADALIMUMAB
     Indication: RHEUMATOID ARTHRITIS
     Route: 058
     Dates: start: 20130813
  3. METHIMAZOLE. [Concomitant]
     Active Substance: METHIMAZOLE
     Indication: PRODUCT USED FOR UNKNOWN INDICATION
     Route: 048
     Dates: start: 20100125
  4. NORVASC [Concomitant]
     Active Substance: AMLODIPINE BESYLATE
     Indication: PRODUCT USED FOR UNKNOWN INDICATION
     Route: 048
     Dates: start: 20100421
  5. CALCIUM CARBONATE/VITAMIN D3 [Concomitant]
     Indication: PRODUCT USED FOR UNKNOWN INDICATION
     Dates: start: 20100125
  6. RECLAST [Concomitant]
     Active Substance: ZOLEDRONIC ACID
     Dosage: 5 MG/ 100 ML
     Route: 042
     Dates: start: 20141217
  7. COZAAR [Concomitant]
     Active Substance: LOSARTAN POTASSIUM
     Indication: PRODUCT USED FOR UNKNOWN INDICATION
     Dosage: EVERY EVENING
     Route: 048
     Dates: start: 20100125
  8. RECLAST [Concomitant]
     Active Substance: ZOLEDRONIC ACID
     Indication: PRODUCT USED FOR UNKNOWN INDICATION
     Dosage: 5 MG/ 100 ML
     Route: 042
     Dates: start: 20100125
  9. RECLAST [Concomitant]
     Active Substance: ZOLEDRONIC ACID
     Dosage: 5 MG/ 100 ML, 5MG IV OVER ATLEAST 15 MIN YEARLY
     Route: 042
     Dates: start: 20131210
  10. SINGULAIR [Concomitant]
     Active Substance: MONTELUKAST SODIUM
     Indication: PRODUCT USED FOR UNKNOWN INDICATION
     Dosage: EVERY EVENING, PATIENT TAKES AS REQUIRED
     Route: 048
     Dates: start: 20100421
  11. COZAAR [Concomitant]
     Active Substance: LOSARTAN POTASSIUM
     Dosage: EVERY MORNING
     Route: 048
     Dates: start: 20100125
  12. PINDOLOL. [Concomitant]
     Active Substance: PINDOLOL
     Indication: PRODUCT USED FOR UNKNOWN INDICATION
     Route: 048
     Dates: start: 20100421
  13. VITAMIN D3 [Concomitant]
     Active Substance: CHOLECALCIFEROL
     Indication: PRODUCT USED FOR UNKNOWN INDICATION
     Route: 048
     Dates: start: 20100421
  14. METHOTREXATE SODIUM. [Concomitant]
     Active Substance: METHOTREXATE SODIUM
     Indication: PRODUCT USED FOR UNKNOWN INDICATION
     Dosage: 6 TABLETS ONCE A WEEK
     Route: 048
     Dates: start: 20150317
  15. PRILOSEC [Concomitant]
     Active Substance: OMEPRAZOLE MAGNESIUM
     Indication: PRODUCT USED FOR UNKNOWN INDICATION
     Dosage: BEFORE MEAL
     Route: 048
     Dates: start: 20140416
  16. COUMADIN [Concomitant]
     Active Substance: WARFARIN SODIUM
     Indication: PRODUCT USED FOR UNKNOWN INDICATION
     Route: 048
     Dates: start: 20100125

REACTIONS (30)
  - Urinary sediment present [Recovering/Resolving]
  - Urine abnormality [Not Recovered/Not Resolved]
  - Aspartate aminotransferase increased [Unknown]
  - Asthenia [Not Recovered/Not Resolved]
  - Arthralgia [Unknown]
  - Urine abnormality [Unknown]
  - Urinary casts [Unknown]
  - Chest X-ray abnormal [Unknown]
  - Nausea [Unknown]
  - Pulmonary embolism [Unknown]
  - Pulmonary thrombosis [Recovering/Resolving]
  - Osteoarthritis [Unknown]
  - Foot deformity [Unknown]
  - White blood cells urine [Not Recovered/Not Resolved]
  - Anti-cyclic citrullinated peptide antibody positive [Unknown]
  - Deep vein thrombosis [Recovered/Resolved]
  - Urinary tract infection [Unknown]
  - Synovitis [Unknown]
  - Red cell distribution width increased [Not Recovered/Not Resolved]
  - Monocyte count increased [Unknown]
  - Essential hypertension [Unknown]
  - Nodal osteoarthritis [Unknown]
  - Bacterial test positive [Not Recovered/Not Resolved]
  - Carpal tunnel syndrome [Unknown]
  - Joint range of motion decreased [Unknown]
  - Joint effusion [Unknown]
  - Red blood cell sedimentation rate increased [Unknown]
  - Red blood cell sedimentation rate increased [Unknown]
  - Drug effect incomplete [Unknown]
  - Hypoaesthesia [Unknown]

NARRATIVE: CASE EVENT DATE: 20130813
